FAERS Safety Report 24618402 (Version 1)
Quarter: 2024Q4

REPORT INFORMATION
  Report Type: Spontaneous
  Country: US (occurrence: None)
  Receive Date: 20241113
  Receipt Date: 20241113
  Transmission Date: 20250115
  Serious: Yes (Hospitalization)
  Sender: Public
  Company Number: None

PATIENT
  Age: 79 Year
  Sex: Male

DRUGS (1)
  1. METFORMIN HYDROCHLORIDE [Suspect]
     Active Substance: METFORMIN HYDROCHLORIDE
     Indication: Diabetes mellitus
     Dosage: FREQUENCY : TWICE A DAY;?
     Route: 048

REACTIONS (10)
  - Diarrhoea [None]
  - Nausea [None]
  - Vomiting [None]
  - Tachycardia [None]
  - Hypoxia [None]
  - Blood pressure increased [None]
  - Dehydration [None]
  - Chronic kidney disease [None]
  - Atelectasis [None]
  - Acute kidney injury [None]

NARRATIVE: CASE EVENT DATE: 20240829
